FAERS Safety Report 5444252-8 (Version None)
Quarter: 2007Q3

REPORT INFORMATION
  Report Type: 
  Country: None (occurrence: None)
  Receive Date: 20070904
  Receipt Date: 20070904
  Transmission Date: 20080115
  Serious: Yes (Other)
  Sender: FDA-Public Use
  Company Number: None

PATIENT
  Sex: Male
  Weight: 91.173 kg

DRUGS (1)
  1. ATENOLOL [Suspect]
     Indication: HYPERTENSION
     Dosage: 25 MG. PER DAY
     Dates: start: 20000101, end: 20070831

REACTIONS (2)
  - DRUG EFFECT DECREASED [None]
  - ERECTILE DYSFUNCTION [None]
